FAERS Safety Report 14047422 (Version 2)
Quarter: 2017Q4

REPORT INFORMATION
  Report Type: Other
  Country: IT (occurrence: IT)
  Receive Date: 20171005
  Receipt Date: 20171130
  Transmission Date: 20180321
  Serious: Yes (Other)
  Sender: FDA-Public Use
  Company Number: IT-HIKMA PHARMACEUTICALS CO. LTD-2017IT013212

PATIENT

DRUGS (1)
  1. INFLECTRA [Suspect]
     Active Substance: INFLIXIMAB-DYYB
     Indication: COLITIS ULCERATIVE
     Dosage: 175 MG, MONTHLY (MAINTENANCE: BIMONTHLY INFUSION AT 350 MG (3 DF AND HALF EVERY 8 WEEKS) DOSE 5MG/KG
     Route: 042
     Dates: start: 20170115, end: 20170801

REACTIONS (3)
  - Pustular psoriasis [Recovered/Resolved]
  - Drug intolerance [Unknown]
  - Dermatitis bullous [Recovered/Resolved]

NARRATIVE: CASE EVENT DATE: 20170808
